FAERS Safety Report 13384372 (Version 1)
Quarter: 2017Q1

REPORT INFORMATION
  Report Type: Spontaneous
  Country: NL (occurrence: NL)
  Receive Date: 20170329
  Receipt Date: 20170329
  Transmission Date: 20170429
  Serious: Yes (Hospitalization)
  Sender: FDA-Public Use
  Company Number: NL-BAYER-2017-053448

PATIENT
  Age: 69 Year
  Sex: Female
  Weight: 63 kg

DRUGS (7)
  1. SPIRONOLACTON [Suspect]
     Active Substance: SPIRONOLACTONE
     Dosage: 1 DF, QD
     Route: 048
     Dates: start: 201512
  2. FUROSEMIDE. [Suspect]
     Active Substance: FUROSEMIDE
     Dosage: 1 DF, QD
     Route: 048
     Dates: start: 201601
  3. ATORVASTATIN [Suspect]
     Active Substance: ATORVASTATIN
     Indication: HYPERCHOLESTEROLAEMIA
     Dosage: 1 DF, QD
     Route: 048
     Dates: start: 201512
  4. LISINOPRIL. [Suspect]
     Active Substance: LISINOPRIL
     Dosage: 1 DF, QD
     Dates: start: 201512
  5. ACETYLSALICYLIC ACID (} 100 MG) [Suspect]
     Active Substance: ASPIRIN
     Route: 048
     Dates: start: 201512
  6. SELOKENZOC [Suspect]
     Active Substance: METOPROLOL SUCCINATE
     Dosage: 1 DF, QD
     Route: 048
     Dates: start: 201512
  7. ALLOPURINOL. [Suspect]
     Active Substance: ALLOPURINOL
     Indication: GOUT
     Dosage: 1 DF, QD
     Route: 048
     Dates: start: 201609

REACTIONS (10)
  - Epistaxis [Recovered/Resolved]
  - Poor quality sleep [Recovering/Resolving]
  - Anaemia [Recovering/Resolving]
  - Gout [Recovering/Resolving]
  - Oedema peripheral [Not Recovered/Not Resolved]
  - Alopecia [Recovered/Resolved with Sequelae]
  - Myalgia [Not Recovered/Not Resolved]
  - Heart rate decreased [Recovering/Resolving]
  - Eyelid oedema [Not Recovered/Not Resolved]
  - Peripheral coldness [Not Recovered/Not Resolved]

NARRATIVE: CASE EVENT DATE: 20151231
